FAERS Safety Report 6916895-3 (Version None)
Quarter: 2010Q3

REPORT INFORMATION
  Report Type: 
  Country: None (occurrence: None)
  Receive Date: 20100810
  Receipt Date: 20100802
  Transmission Date: 20110219
  Serious: Yes (Life-Threatening, Hospitalization, Other)
  Sender: FDA-Public Use
  Company Number: JP-JNJFOC-20100510755

PATIENT
  Sex: Female
  Weight: 38 kg

DRUGS (40)
  1. ITRIZOLE [Suspect]
     Indication: PENICILLIOSIS
     Route: 041
  2. ITRIZOLE [Suspect]
     Route: 041
  3. ITRIZOLE [Suspect]
     Indication: BRONCHOPULMONARY ASPERGILLOSIS
     Route: 041
  4. ITRIZOLE [Suspect]
     Route: 041
  5. ITRIZOLE [Suspect]
     Route: 048
  6. ITRIZOLE [Suspect]
     Route: 048
  7. ITRIZOLE [Suspect]
     Route: 048
  8. ITRIZOLE [Suspect]
     Route: 048
  9. WARFARIN SODIUM [Interacting]
     Indication: ATRIAL FIBRILLATION
     Route: 048
  10. WARFARIN SODIUM [Interacting]
     Route: 048
  11. WARFARIN SODIUM [Interacting]
     Indication: CARDIAC FAILURE
     Route: 048
  12. WARFARIN SODIUM [Interacting]
     Route: 048
  13. TRANEXAMIC ACID [Concomitant]
     Indication: HAEMOPTYSIS
     Route: 048
  14. RHYTHMY [Concomitant]
     Indication: INSOMNIA
     Route: 048
  15. LASIX [Concomitant]
     Indication: CARDIAC FAILURE
     Route: 048
  16. LASIX [Concomitant]
     Route: 048
  17. MUCODYNE [Concomitant]
     Indication: BRONCHITIS CHRONIC
     Route: 048
  18. MUCODYNE [Concomitant]
     Indication: EMPHYSEMA
     Route: 048
  19. MUCODYNE [Concomitant]
     Indication: BRONCHIECTASIS
     Route: 048
  20. MUCOSOLVAN [Concomitant]
     Indication: CHRONIC RESPIRATORY FAILURE
     Route: 048
  21. MUCOSOLVAN [Concomitant]
     Indication: EMPHYSEMA
     Route: 048
  22. MUCOSOLVAN [Concomitant]
     Indication: BRONCHIECTASIS
     Route: 048
  23. THEOPHYLLINE [Concomitant]
     Indication: ASTHMA
     Route: 048
  24. OMEPRAL [Concomitant]
     Indication: GASTRIC ULCER
     Dosage: ENTERIC COATING DRUG
     Route: 048
  25. MUCOSTA [Concomitant]
     Indication: GASTRIC ULCER
     Route: 048
  26. PULMICORT [Concomitant]
     Indication: ASTHMA
     Route: 055
  27. RULID [Concomitant]
     Indication: BRONCHITIS CHRONIC
     Route: 048
  28. RULID [Concomitant]
     Indication: BRONCHIECTASIS
     Route: 048
  29. NITRODERM [Concomitant]
     Indication: ANGINA PECTORIS
     Route: 062
  30. MEROPENEM TRIHYDRATE [Concomitant]
     Indication: PNEUMONIA BACTERIAL
     Route: 042
  31. SOLULACT [Concomitant]
     Indication: DEHYDRATION
     Route: 042
  32. VEEN-D [Concomitant]
     Indication: DEHYDRATION
     Route: 042
  33. FUROSEMIDE [Concomitant]
     Indication: CARDIAC FAILURE
     Route: 048
  34. ALDACTONE [Concomitant]
     Indication: CARDIAC FAILURE
     Route: 048
  35. VASOLAN [Concomitant]
     Indication: ATRIAL FIBRILLATION
     Route: 048
  36. MINOCYCLINE HCL [Concomitant]
     Indication: BRONCHIECTASIS
     Route: 048
  37. HEPARIN SODIUM [Concomitant]
     Indication: ATRIAL FIBRILLATION
     Route: 042
  38. HEPARIN SODIUM [Concomitant]
     Indication: CARDIAC FAILURE
     Route: 042
  39. ADONA [Concomitant]
     Indication: EPISTAXIS
     Route: 042
  40. KAYTWO [Concomitant]
     Indication: EPISTAXIS
     Route: 042

REACTIONS (12)
  - ATRIAL FIBRILLATION [None]
  - BLOOD UREA DECREASED [None]
  - CARDIAC FAILURE [None]
  - DRUG INTERACTION [None]
  - DYSPNOEA [None]
  - EPISTAXIS [None]
  - HYPOCHLORAEMIA [None]
  - HYPONATRAEMIA [None]
  - INSOMNIA [None]
  - INTERNATIONAL NORMALISED RATIO INCREASED [None]
  - PROTHROMBIN LEVEL DECREASED [None]
  - WHITE BLOOD CELL COUNT INCREASED [None]
